FAERS Safety Report 5288908-9 (Version None)
Quarter: 2007Q2

REPORT INFORMATION
  Report Type: 
  Country: None (occurrence: None)
  Receive Date: 20070405
  Receipt Date: 20070330
  Transmission Date: 20071010
  Serious: Yes (Other)
  Sender: FDA-Public Use
  Company Number: GB-PFIZER INC-2006103752

PATIENT
  Sex: Female

DRUGS (2)
  1. DELTACORTRIL [Suspect]
     Route: 048
  2. AMITRIPTYLINE HCL [Concomitant]
     Route: 065

REACTIONS (15)
  - ABDOMINAL DISTENSION [None]
  - ASTHENIA [None]
  - DECREASED INTEREST [None]
  - DEPRESSION [None]
  - DIPLOPIA [None]
  - DISORIENTATION [None]
  - ENERGY INCREASED [None]
  - EYE IRRITATION [None]
  - FEELING OF DESPAIR [None]
  - MIGRAINE [None]
  - PARAESTHESIA [None]
  - SKIN ATROPHY [None]
  - STRESS [None]
  - SUICIDAL IDEATION [None]
  - VISION BLURRED [None]
